FAERS Safety Report 6318759-5 (Version None)
Quarter: 2009Q3

REPORT INFORMATION
  Report Type: 
  Country: None (occurrence: None)
  Receive Date: 20090821
  Receipt Date: 20090814
  Transmission Date: 20100115
  Serious: Yes (Hospitalization, Other)
  Sender: FDA-Public Use
  Company Number: US-AMGEN-QUU360209

PATIENT
  Sex: Female

DRUGS (1)
  1. ENBREL [Suspect]
     Indication: RHEUMATOID ARTHRITIS
     Route: 058
     Dates: start: 20050520

REACTIONS (7)
  - DIZZINESS [None]
  - ERYTHEMA [None]
  - MALAISE [None]
  - PNEUMONIA [None]
  - RASH PUSTULAR [None]
  - RENAL MASS [None]
  - SKIN EXFOLIATION [None]
